FAERS Safety Report 8615375-7 (Version None)
Quarter: 2012Q3

REPORT INFORMATION
  Report Type: 
  Country: None (occurrence: None)
  Receive Date: 20120823
  Receipt Date: 20120821
  Transmission Date: 20120928
  Serious: Yes (Hospitalization, Other)
  Sender: FDA-Public Use
  Company Number: US-FRI-1000029219

PATIENT
  Sex: Male

DRUGS (13)
  1. VIIBRYD [Suspect]
     Dosage: 20 MG
     Route: 048
     Dates: start: 20110719, end: 20110725
  2. NUVIGIL [Concomitant]
     Indication: HYPERTHYROIDISM
     Dosage: 250 MG
     Dates: end: 20120301
  3. DEPAKOTE ER [Concomitant]
     Dosage: 2000 MG
     Dates: start: 20120201
  4. PROPRANOLOL [Concomitant]
     Dosage: 120 MG
     Dates: end: 20120227
  5. CLONAZEPAM [Concomitant]
     Dosage: 1 MG HS
     Dates: start: 20000101
  6. PROPRANOLOL [Concomitant]
     Dosage: 240 MG
     Dates: start: 20120228
  7. VIIBRYD [Suspect]
     Indication: DEPRESSED MOOD
     Dosage: 10 MG
     Route: 048
     Dates: start: 20110712, end: 20110718
  8. DEPAKOTE ER [Concomitant]
     Dosage: 1500 MG
     Dates: end: 20120201
  9. VIIBRYD [Suspect]
     Dosage: 40 MG
     Route: 048
     Dates: start: 20110726, end: 20120301
  10. CLONAZEPAM [Concomitant]
     Dosage: 0.5 MG AM
     Dates: start: 20000101
  11. CLONAZEPAM [Concomitant]
     Dates: start: 20000101
  12. NEXIUM [Concomitant]
     Dosage: 80 MG
  13. OXYBUTYNIN [Concomitant]
     Dosage: 5 MG
     Dates: start: 20100101

REACTIONS (5)
  - HYPERTHYROIDISM [None]
  - SEROTONIN SYNDROME [None]
  - VISION BLURRED [None]
  - ASTHENIA [None]
  - MEMORY IMPAIRMENT [None]
